FAERS Safety Report 14425039 (Version 2)
Quarter: 2018Q1

REPORT INFORMATION
  Report Type: Spontaneous
  Country: FR (occurrence: FR)
  Receive Date: 20180123
  Receipt Date: 20180123
  Transmission Date: 20180509
  Serious: Yes (Hospitalization)
  Sender: FDA-Public Use
  Company Number: FR-CONCORDIA PHARMACEUTICALS INC.-GSH201801-000340

PATIENT
  Age: 40 Year
  Sex: Male

DRUGS (1)
  1. PLAQUENIL [Suspect]
     Active Substance: HYDROXYCHLOROQUINE SULFATE
     Indication: POISONING DELIBERATE
     Route: 048
     Dates: start: 20171221, end: 20171221

REACTIONS (2)
  - Vomiting [Recovered/Resolved]
  - Electrocardiogram QRS complex prolonged [Recovered/Resolved]

NARRATIVE: CASE EVENT DATE: 20171221
